FAERS Safety Report 10031971 (Version 1)
Quarter: 2014Q1

REPORT INFORMATION
  Report Type: Spontaneous
  Country: US (occurrence: US)
  Receive Date: 20140324
  Receipt Date: 20140324
  Transmission Date: 20141002
  Serious: No
  Sender: FDA-Public Use
  Company Number: US-ROXANE LABORATORIES, INC.-2014-RO-00460RO

PATIENT
  Sex: Female

DRUGS (2)
  1. CLOTRIMAZOLE [Suspect]
     Indication: CANDIDA INFECTION
     Dosage: 50 MG
     Route: 048
     Dates: start: 20140320
  2. CLOTRIMAZOLE [Suspect]
     Route: 048
     Dates: start: 2013, end: 2013

REACTIONS (2)
  - Abdominal discomfort [Not Recovered/Not Resolved]
  - Oral discomfort [Not Recovered/Not Resolved]
